FAERS Safety Report 10022635 (Version 1)
Quarter: 2014Q1

REPORT INFORMATION
  Report Type: Spontaneous
  Country: GB (occurrence: GB)
  Receive Date: 20140319
  Receipt Date: 20140319
  Transmission Date: 20141002
  Serious: Yes (Other)
  Sender: FDA-Public Use
  Company Number: GB-TEVA-467472ISR

PATIENT
  Age: 41 Year
  Sex: Female

DRUGS (4)
  1. PREDNISOLONE [Suspect]
     Indication: EAR INFECTION
     Dosage: 30 MILLIGRAM DAILY;
     Route: 048
     Dates: start: 20130910
  2. PREDNISOLONE [Suspect]
     Dosage: 25 MILLIGRAM DAILY;
     Route: 048
  3. PREDNISOLONE [Suspect]
     Dosage: 20 MILLIGRAM DAILY;
     Route: 048
  4. PREDNISOLONE [Suspect]
     Dosage: 15 MILLIGRAM DAILY;
     Route: 048
     Dates: end: 20131104

REACTIONS (9)
  - Anxiety [Not Recovered/Not Resolved]
  - Mood swings [Not Recovered/Not Resolved]
  - Heart rate increased [Not Recovered/Not Resolved]
  - Headache [Not Recovered/Not Resolved]
  - Abdominal discomfort [Not Recovered/Not Resolved]
  - Muscle spasms [Not Recovered/Not Resolved]
  - Myalgia [Not Recovered/Not Resolved]
  - Muscular weakness [Not Recovered/Not Resolved]
  - Withdrawal syndrome [Not Recovered/Not Resolved]
